FAERS Safety Report 13675818 (Version 1)
Quarter: 2017Q2

REPORT INFORMATION
  Report Type: Spontaneous
  Country: US (occurrence: US)
  Receive Date: 20170620
  Receipt Date: 20170620
  Transmission Date: 20170830
  Serious: Yes (Life-Threatening, Hospitalization, Disabling)
  Sender: FDA-Public Use
  Company Number: None

PATIENT
  Age: 63 Year
  Sex: Female
  Weight: 75.15 kg

DRUGS (21)
  1. LIPITOR [Concomitant]
     Active Substance: ATORVASTATIN CALCIUM
  2. HYGROTON [Concomitant]
     Active Substance: CHLORTHALIDONE
  3. TURMERIC/CURCUMIN COMPLEX [Concomitant]
  4. COENZYME Q10 [Concomitant]
     Active Substance: UBIDECARENONE
  5. COZAAR [Concomitant]
     Active Substance: LOSARTAN POTASSIUM
  6. CALCIUM [Concomitant]
     Active Substance: CALCIUM
  7. FLAXSEED [Concomitant]
     Active Substance: FLAX SEED
  8. JANUVIA [Concomitant]
     Active Substance: SITAGLIPTIN PHOSPHATE
  9. CINNAMON. [Concomitant]
     Active Substance: CINNAMON
  10. EVENING PRIMROSE [Concomitant]
  11. AMBIEN [Concomitant]
     Active Substance: ZOLPIDEM TARTRATE
  12. FLEXERAL [Concomitant]
  13. BIOTIN [Concomitant]
     Active Substance: BIOTIN
  14. VITAMIN D3 [Concomitant]
     Active Substance: CHOLECALCIFEROL
  15. XANAX [Concomitant]
     Active Substance: ALPRAZOLAM
  16. MAGNESIUM [Concomitant]
     Active Substance: MAGNESIUM
  17. BIOSIL [Concomitant]
  18. CHROMIUM [Concomitant]
     Active Substance: CHROMIC CHLORIDE\CHROMIUM
  19. HYDROCHLOROTHIAZIDE. [Suspect]
     Active Substance: HYDROCHLOROTHIAZIDE
     Indication: BLOOD PRESSURE INCREASED
     Dosage: ?          QUANTITY:1 CAPSULE(S);?
     Route: 048
  20. METFORMAN [Concomitant]
  21. ALOE [Concomitant]
     Active Substance: ALOE

REACTIONS (2)
  - Rotator cuff syndrome [None]
  - Fall [None]

NARRATIVE: CASE EVENT DATE: 20140208
